FAERS Safety Report 9944376 (Version 1)
Quarter: 2014Q1

REPORT INFORMATION
  Report Type: Report from Study
  Country: US (occurrence: US)
  Receive Date: 20140303
  Receipt Date: 20140303
  Transmission Date: 20141002
  Serious: Yes (Hospitalization)
  Sender: FDA-Public Use
  Company Number: US-ABBVIE-13P-163-1052790-00

PATIENT
  Age: 67 Year
  Sex: Female
  Weight: 59.47 kg

DRUGS (7)
  1. HUMIRA [Suspect]
     Indication: CROHN^S DISEASE
     Dates: start: 2008
  2. WARFARIN [Concomitant]
     Indication: THROMBOSIS
     Dates: start: 2007
  3. ZOLPIDEM [Concomitant]
     Indication: INSOMNIA
  4. OMEPRAZOLE [Concomitant]
     Indication: GASTROOESOPHAGEAL REFLUX DISEASE
  5. CLONAZEPAM [Concomitant]
     Indication: ANXIETY
  6. SERTRALINE [Concomitant]
     Indication: DEPRESSION
  7. IRON [Concomitant]
     Indication: IRON DEFICIENCY

REACTIONS (4)
  - Clostridium difficile colitis [Recovered/Resolved]
  - Dehydration [Recovered/Resolved]
  - Asthenia [Recovered/Resolved]
  - Muscle spasms [Recovered/Resolved]
